FAERS Safety Report 5307841-7 (Version None)
Quarter: 2007Q2

REPORT INFORMATION
  Report Type: 
  Country: None (occurrence: None)
  Receive Date: 20070419
  Receipt Date: 20070405
  Transmission Date: 20071010
  Serious: Yes (Hospitalization)
  Sender: FDA-Public Use
  Company Number: 2006PV019488

PATIENT
  Age: 58 Year
  Sex: Female
  Weight: 109.3169 kg

DRUGS (15)
  1. BYETTA [Suspect]
     Indication: DIABETES MELLITUS NON-INSULIN-DEPENDENT
     Dosage: 5 MCG;BID;SC
     Route: 058
     Dates: start: 20060616, end: 20060810
  2. ASPIRIN [Concomitant]
  3. CADUET [Concomitant]
  4. CALCITRIOL [Concomitant]
  5. CLONIDINE [Concomitant]
  6. DAILYVITE [Concomitant]
  7. HUMALOG [Concomitant]
  8. HUMULIN N [Concomitant]
  9. KAYEXALATE [Concomitant]
  10. LOPRESSOR [Concomitant]
  11. METOLAZONE [Concomitant]
  12. PAROXETINE [Concomitant]
  13. PLAVIX [Concomitant]
  14. TORSEMIDE [Concomitant]
  15. PROCRIT [Concomitant]

REACTIONS (2)
  - CONDITION AGGRAVATED [None]
  - RENAL FAILURE CHRONIC [None]
